FAERS Safety Report 8418640-1 (Version None)
Quarter: 2012Q2

REPORT INFORMATION
  Report Type: 
  Country: None (occurrence: None)
  Receive Date: 20120531
  Receipt Date: 20120521
  Transmission Date: 20120825
  Serious: Yes (Death)
  Sender: FDA-Public Use
  Company Number: AUR-APL-2012-02298

PATIENT
  Age: 68 Year
  Sex: Male

DRUGS (8)
  1. METFFORMIN HYDROCHLORIDE [Suspect]
     Indication: DIABETES MELLITUS
     Dosage: 3 GM (1 GM, 3 IN 1 D), ORAL
     Route: 048
     Dates: start: 20040101
  2. SIMVASTATIN [Concomitant]
  3. AMARYL [Concomitant]
  4. WARFARIN SODIUM [Concomitant]
  5. ISOPTIN SR [Concomitant]
  6. RAMIPRIL [Concomitant]
  7. METOPROLOL SUCCINATE [Concomitant]
  8. DIGITOXIN TAB [Concomitant]

REACTIONS (15)
  - MULTI-ORGAN FAILURE [None]
  - RENAL FAILURE [None]
  - LACTIC ACIDOSIS [None]
  - ASPARTATE AMINOTRANSFERASE INCREASED [None]
  - BLOOD SODIUM DECREASED [None]
  - BLOOD PRESSURE DECREASED [None]
  - TOXICITY TO VARIOUS AGENTS [None]
  - FIBRIN D DIMER INCREASED [None]
  - ATRIAL FIBRILLATION [None]
  - HELICOBACTER GASTRITIS [None]
  - ALANINE AMINOTRANSFERASE INCREASED [None]
  - BLOOD GLUCOSE INCREASED [None]
  - INTERNATIONAL NORMALISED RATIO INCREASED [None]
  - HAEMOGLOBIN DECREASED [None]
  - WHITE BLOOD CELL COUNT INCREASED [None]
